FAERS Safety Report 10709049 (Version 2)
Quarter: 2015Q1

REPORT INFORMATION
  Report Type: Spontaneous
  Country: US (occurrence: US)
  Receive Date: 20150114
  Receipt Date: 20150206
  Transmission Date: 20150721
  Serious: No
  Sender: FDA-Public Use
  Company Number: US-AMGEN-USASL2015001501

PATIENT
  Age: 48 Year
  Sex: Female

DRUGS (1)
  1. ENBREL [Suspect]
     Active Substance: ETANERCEPT
     Indication: PSORIATIC ARTHROPATHY
     Dosage: 50 MG, QWK
     Route: 058
     Dates: start: 20141112

REACTIONS (6)
  - Injection site scab [Recovering/Resolving]
  - Injection site haemorrhage [Unknown]
  - Contusion [Unknown]
  - Menorrhagia [Not Recovered/Not Resolved]
  - Injection site discolouration [Unknown]
  - Biopsy [Recovered/Resolved]

NARRATIVE: CASE EVENT DATE: 20141226
